FAERS Safety Report 8444799 (Version 2)
Quarter: 2014Q1

REPORT INFORMATION
  Report Type: Spontaneous
  Country: US (occurrence: US)
  Receive Date: 20120307
  Receipt Date: 20140108
  Transmission Date: 20141002
  Serious: Yes (Other)
  Sender: FDA-Public Use
  Company Number: US-ASTELLAS-2012US002367

PATIENT
  Age: 67 Year
  Sex: Female
  Weight: 104 kg

DRUGS (2)
  1. PROGRAF [Suspect]
     Indication: LIVER TRANSPLANT
     Dosage: 1 MG, UID/QD
     Route: 048
     Dates: start: 19950117
  2. PROGRAF [Suspect]
     Dosage: 1 MG, BID
     Route: 048

REACTIONS (3)
  - Upper limb fracture [Unknown]
  - Femur fracture [Unknown]
  - Ankle fracture [Unknown]
